FAERS Safety Report 8843377 (Version 1)
Quarter: 2012Q4

REPORT INFORMATION
  Report Type: 
  Country: FR (occurrence: FR)
  Receive Date: 20121016
  Receipt Date: 20121016
  Transmission Date: 20130627
  Serious: Yes (Hospitalization, Congenital Anomaly)
  Sender: FDA-Public Use
  Company Number: FR-PFIZER INC-2012249777

PATIENT
  Sex: Male
  Weight: 2.09 kg

DRUGS (4)
  1. ZITHROMAX [Suspect]
     Dosage: 250 mg tablet, UNK
     Route: 064
     Dates: start: 20110411, end: 20111208
  2. PROGRAF [Suspect]
     Dosage: UNK
     Route: 064
     Dates: start: 20110411, end: 20111208
  3. IMUREL [Suspect]
     Dosage: UNK
     Route: 064
     Dates: start: 20110411, end: 20111208
  4. CORTANCYL [Suspect]
     Dosage: UNK
     Route: 064
     Dates: start: 20110411, end: 20111208

REACTIONS (4)
  - Exposure during pregnancy [Unknown]
  - Aortic valve incompetence [Unknown]
  - Atrial septal defect [Unknown]
  - Atrial septal defect [Unknown]
